FAERS Safety Report 11084056 (Version 1)
Quarter: 2015Q2

REPORT INFORMATION
  Report Type: Report from Study
  Country: GR (occurrence: GR)
  Receive Date: 20150501
  Receipt Date: 20150501
  Transmission Date: 20150821
  Serious: Yes (Hospitalization, Other)
  Sender: FDA-Public Use
  Company Number: GR-ABBVIE-15P-066-1382761-00

PATIENT
  Sex: Female
  Weight: 57 kg

DRUGS (4)
  1. SYMMETREL [Concomitant]
     Active Substance: AMANTADINE HYDROCHLORIDE
     Indication: PRODUCT USED FOR UNKNOWN INDICATION
     Route: 048
  2. MADOPAR [Concomitant]
     Active Substance: BENSERAZIDE HYDROCHLORIDE\LEVODOPA
     Indication: PARKINSON^S DISEASE
     Dosage: (100+25) MG
     Route: 048
  3. REMERON [Concomitant]
     Active Substance: MIRTAZAPINE
     Indication: DEPRESSION
     Route: 048
  4. DUODOPA [Suspect]
     Active Substance: CARBIDOPA\LEVODOPA
     Indication: PARKINSON^S DISEASE
     Dosage: MORNING DOSE: 6.6 ML,?CONTINUOUS RATE: 3.5 ML/H,?EXTRA DOSE: 1 ML
     Route: 050
     Dates: start: 20150423

REACTIONS (5)
  - Vascular injury [Recovering/Resolving]
  - Procedural complication [Recovering/Resolving]
  - Vessel puncture site haematoma [Recovering/Resolving]
  - Medication error [Unknown]
  - Venous haemorrhage [Recovering/Resolving]

NARRATIVE: CASE EVENT DATE: 20150427
